FAERS Safety Report 8869046 (Version 1)
Quarter: 2012Q4

REPORT INFORMATION
  Report Type: Report from Study
  Country: US (occurrence: US)
  Receive Date: 20121027
  Receipt Date: 20121027
  Transmission Date: 20130627
  Serious: Yes (Hospitalization, Other)
  Sender: FDA-Public Use
  Company Number: US-TEVA-366075USA

PATIENT
  Age: 23 Month
  Sex: Female
  Weight: 8.6 kg

DRUGS (7)
  1. LESTAURTINIB [Suspect]
     Indication: ACUTE LYMPHOCYTIC LEUKAEMIA
     Dosage: 3.5 mg/kg/day-days 2-6,3-34 and 58-62
     Route: 048
     Dates: end: 20120925
  2. DEXAMETHASONE [Suspect]
     Indication: ACUTE LYMPHOCYTIC LEUKAEMIA
     Dosage: 48 Milligram Daily; 3 mg/m2/dose-days 1-5, 29-33 and 57-61
     Route: 048
     Dates: end: 20120924
  3. VINCRISTINE [Suspect]
     Indication: ACUTE LYMPHOCYTIC LEUKAEMIA
     Dosage: 0.05 mg/kg/dose days 1,29, 57
     Route: 042
     Dates: end: 20120920
  4. MERCAPTOPURINE [Suspect]
     Indication: ACUTE LYMPHOCYTIC LEUKAEMIA
     Dates: end: 20121017
  5. METHOTREXATE [Suspect]
     Indication: ACUTE LYMPHOCYTIC LEUKAEMIA
     Dosage: 20 mg/m2/dose days 8-28, 36-56 and 64-84
     Route: 048
     Dates: end: 20121011
  6. METHOTREXATE [Suspect]
     Dosage: day 1
     Route: 037
  7. BACTRIM [Suspect]

REACTIONS (3)
  - Alanine aminotransferase increased [Recovered/Resolved]
  - Pyrexia [Recovered/Resolved]
  - Diarrhoea [Recovered/Resolved]
